FAERS Safety Report 20346534 (Version 1)
Quarter: 2022Q1

REPORT INFORMATION
  Report Type: Spontaneous
  Country: US (occurrence: None)
  Receive Date: 20220115
  Receipt Date: 20220115
  Transmission Date: 20220424
  Serious: No
  Sender: FDA-Public Use
  Company Number: None

PATIENT
  Age: 38 Year
  Sex: Female
  Weight: 83.34 kg

DRUGS (2)
  1. MIRENA [Suspect]
     Active Substance: LEVONORGESTREL
     Indication: Dysmenorrhoea
     Dosage: OTHER QUANTITY : 1 IUD;?OTHER FREQUENCY : 7 YEARS;?
     Route: 067
     Dates: start: 20211228, end: 20220111
  2. MIRENA [Suspect]
     Active Substance: LEVONORGESTREL
     Indication: Heavy menstrual bleeding

REACTIONS (8)
  - Complication associated with device [None]
  - Dizziness [None]
  - Fatigue [None]
  - Back pain [None]
  - Weight increased [None]
  - Anxiety [None]
  - Condition aggravated [None]
  - Menstruation irregular [None]

NARRATIVE: CASE EVENT DATE: 20211228
